FAERS Safety Report 9971855 (Version 1)
Quarter: 2014Q1

REPORT INFORMATION
  Report Type: Spontaneous
  Country: IN (occurrence: None)
  Receive Date: 20140304
  Receipt Date: 20140304
  Transmission Date: 20141002
  Serious: Yes (Other)
  Sender: FDA-Public Use
  Company Number: 2014P1001588

PATIENT
  Age: 27 Year
  Sex: Female

DRUGS (3)
  1. PHENYTOIN [Suspect]
     Indication: CONVULSION
     Route: 048
  2. CEFTRIAXONE [Suspect]
     Route: 048
  3. DICLOFENAC [Suspect]
     Route: 048

REACTIONS (4)
  - Sinoatrial block [None]
  - Incorrect drug administration rate [None]
  - Toxicity to various agents [None]
  - Arrhythmia [None]
